FAERS Safety Report 5663890-0 (Version None)
Quarter: 2008Q1

REPORT INFORMATION
  Report Type: 
  Country: None (occurrence: None)
  Receive Date: 20080311
  Receipt Date: 20080303
  Transmission Date: 20080703
  Serious: Yes (Life-Threatening, Hospitalization, Congenital Anomaly, Other)
  Sender: FDA-Public Use
  Company Number: ADE2008-0138

PATIENT
  Age: 19 Day
  Sex: Female
  Weight: 4.3 kg

DRUGS (2)
  1. SERTRALINE HCL [Suspect]
     Dosage: TRANSPLACENTAL
     Route: 064
  2. PHENERGAN HCL [Concomitant]

REACTIONS (9)
  - CARDIAC MURMUR [None]
  - DEHYDRATION [None]
  - DRUG EXPOSURE DURING PREGNANCY [None]
  - HYPOTONIA NEONATAL [None]
  - ILL-DEFINED DISORDER [None]
  - IRRITABILITY [None]
  - LIPOATROPHY [None]
  - NEONATAL DISORDER [None]
  - WEIGHT DECREASE NEONATAL [None]
